FAERS Safety Report 11299243 (Version 1)
Quarter: 2015Q3

REPORT INFORMATION
  Report Type: Spontaneous
  Country: US (occurrence: US)
  Receive Date: 20150722
  Receipt Date: 20150722
  Transmission Date: 20151125
  Serious: No
  Sender: FDA-Public Use
  Company Number: US-ELI_LILLY_AND_COMPANY-US201208007499

PATIENT
  Age: 63 Year
  Sex: Male

DRUGS (9)
  1. ZESTRIL [Concomitant]
     Active Substance: LISINOPRIL
  2. CARBIDOL [Concomitant]
  3. EFFIENT [Suspect]
     Active Substance: PRASUGREL HYDROCHLORIDE
     Indication: STENT PLACEMENT
     Dosage: 10 MG, QD
     Dates: start: 201106, end: 201112
  4. LANTUS [Concomitant]
     Active Substance: INSULIN GLARGINE
     Dosage: QD AT BEDTIME
  5. METFORMIN [Concomitant]
     Active Substance: METFORMIN HYDROCHLORIDE
  6. GLIMEPIRIDE. [Concomitant]
     Active Substance: GLIMEPIRIDE
  7. ASPIRIN. [Concomitant]
     Active Substance: ASPIRIN
     Dosage: 325 MG, UNK
  8. PREVACID [Concomitant]
     Active Substance: LANSOPRAZOLE
  9. ZOCOR [Concomitant]
     Active Substance: SIMVASTATIN

REACTIONS (2)
  - Limb injury [Unknown]
  - Arthritis [Unknown]
